FAERS Safety Report 26098561 (Version 2)
Quarter: 2025Q4

REPORT INFORMATION
  Report Type: Spontaneous
  Country: CH (occurrence: CH)
  Receive Date: 20251127
  Receipt Date: 20251224
  Transmission Date: 20260117
  Serious: Yes (Death, Other)
  Sender: SERVIER
  Company Number: CH-SERVIER-S25011957

PATIENT

DRUGS (12)
  1. TIBSOVO [Suspect]
     Active Substance: IVOSIDENIB
     Indication: Acute myeloid leukaemia recurrent
     Dosage: 500 MG, QD
     Route: 048
     Dates: start: 20250901, end: 20250928
  2. TIBSOVO [Suspect]
     Active Substance: IVOSIDENIB
     Dosage: 500 MG, QD
     Route: 048
     Dates: start: 20251003, end: 20251015
  3. AZACITIDINE [Concomitant]
     Active Substance: AZACITIDINE
     Indication: Acute myeloid leukaemia recurrent
     Dosage: 140 MG, CYCLICAL
     Route: 058
     Dates: start: 20250901, end: 20250905
  4. AZACITIDINE [Concomitant]
     Active Substance: AZACITIDINE
     Dosage: 140 MG, CYCLICAL
     Route: 058
     Dates: start: 20250908, end: 20250909
  5. AZACITIDINE [Concomitant]
     Active Substance: AZACITIDINE
     Dosage: 140 MG, CYCLICAL
     Route: 058
     Dates: start: 20250929, end: 20251003
  6. AZACITIDINE [Concomitant]
     Active Substance: AZACITIDINE
     Dosage: 140 MG, CYCLICAL
     Route: 058
     Dates: start: 20251006, end: 20251007
  7. Paspertin [Concomitant]
     Indication: Product used for unknown indication
     Dosage: UNK
     Route: 065
  8. ATORVASTATIN [Concomitant]
     Active Substance: ATORVASTATIN
     Indication: Product used for unknown indication
     Dosage: 40 MG, QD
     Route: 065
  9. ASPIRIN [Concomitant]
     Active Substance: ASPIRIN
     Indication: Product used for unknown indication
     Dosage: 100 MG, QD
     Route: 065
  10. FOLIC ACID [Concomitant]
     Active Substance: FOLIC ACID
     Indication: Product used for unknown indication
     Dosage: UNK
     Route: 065
  11. LOPERAMIDE [Concomitant]
     Active Substance: LOPERAMIDE
     Indication: Product used for unknown indication
     Dosage: UNK, PRN
     Route: 065
  12. ACETAMINOPHEN [Concomitant]
     Active Substance: ACETAMINOPHEN
     Indication: Product used for unknown indication
     Dosage: UNK, PRN
     Route: 065

REACTIONS (8)
  - Colon cancer [Fatal]
  - Malignant neoplasm progression [Unknown]
  - Electrocardiogram QT prolonged [Not Recovered/Not Resolved]
  - Metastases to lymph nodes [Unknown]
  - Metastases to liver [Unknown]
  - Pyrexia [Unknown]
  - Nausea [Unknown]
  - Product use in unapproved indication [Recovered/Resolved]

NARRATIVE: CASE EVENT DATE: 20250829
